FAERS Safety Report 9377838 (Version 1)
Quarter: 2013Q3

REPORT INFORMATION
  Report Type: Spontaneous
  Country: US (occurrence: US)
  Receive Date: 20130701
  Receipt Date: 20130701
  Transmission Date: 20140515
  Serious: No
  Sender: FDA-Public Use
  Company Number: US-GLAXOSMITHKLINE-A1022202A

PATIENT
  Age: 64 Year
  Sex: Male

DRUGS (4)
  1. IMITREX [Suspect]
     Indication: MIGRAINE
     Dosage: 100MG SEE DOSAGE TEXT
     Route: 048
     Dates: start: 1998
  2. SUMATRIPTAN SUCCINATE [Suspect]
     Indication: MIGRAINE
     Dosage: 100MG AS REQUIRED
     Route: 048
     Dates: start: 2011
  3. LISINOPRIL [Concomitant]
  4. COLACE [Concomitant]

REACTIONS (3)
  - Intentional drug misuse [Unknown]
  - Overdose [Unknown]
  - Drug ineffective [Unknown]
